FAERS Safety Report 5118700-7 (Version None)
Quarter: 2006Q3

REPORT INFORMATION
  Report Type: 
  Country: None (occurrence: None)
  Receive Date: 20060927
  Receipt Date: 20060914
  Transmission Date: 20061208
  Serious: Yes (Other)
  Sender: FDA-Public Use
  Company Number: 2006112112

PATIENT
  Sex: Male

DRUGS (1)
  1. CAVERJECT [Suspect]
     Dosage: (10 MG), INTRACAVERNOSA
     Route: 017
     Dates: start: 20060601

REACTIONS (3)
  - ERECTION INCREASED [None]
  - PENILE PAIN [None]
  - PROCEDURAL PAIN [None]
